FAERS Safety Report 4831818-9 (Version None)
Quarter: 2005Q4

REPORT INFORMATION
  Report Type: 
  Country: None (occurrence: None)
  Receive Date: 20051118
  Receipt Date: 20050927
  Transmission Date: 20060501
  Serious: Yes (Hospitalization)
  Sender: FDA-Public Use
  Company Number: PHBS2005JP14249

PATIENT
  Age: 74 Year
  Sex: Female

DRUGS (5)
  1. VOLTAREN [Suspect]
     Indication: BACK PAIN
     Dosage: 50 MG/DAY
     Route: 054
     Dates: start: 20050919, end: 20050920
  2. ALLOPURINOL [Concomitant]
     Dosage: 100 MG/DAY
     Route: 048
     Dates: start: 20000101
  3. GASTER D [Concomitant]
     Dosage: 10 MG/DAY
     Route: 048
     Dates: start: 20000101
  4. KALIMATE [Concomitant]
     Dosage: 10 MG/DAY
     Route: 048
     Dates: start: 20000101
  5. DANTRIUM [Concomitant]
     Dosage: 50 MG/DAY
     Route: 048
     Dates: start: 20000101

REACTIONS (2)
  - DIABETIC GANGRENE [None]
  - RASH [None]
